FAERS Safety Report 11294608 (Version 1)
Quarter: 2015Q3

REPORT INFORMATION
  Report Type: Spontaneous
  Country: IT (occurrence: None)
  Receive Date: 20150721
  Receipt Date: 20150721
  Transmission Date: 20151125
  Serious: Yes (Hospitalization)
  Sender: FDA-Public Use
  Company Number: DEP_03189_2015

PATIENT
  Age: 64 Year
  Sex: Female

DRUGS (7)
  1. GABAPENTIN. [Concomitant]
     Active Substance: GABAPENTIN
  2. PANTORC [Concomitant]
     Active Substance: PANTOPRAZOLE SODIUM
  3. NATECAL D3 [Concomitant]
     Active Substance: CALCIUM CARBONATE\CHOLECALCIFEROL
  4. PALEXIA [Suspect]
     Active Substance: TAPENTADOL HYDROCHLORIDE
     Indication: ARTHRALGIA
     Dosage: (100 MG QD ORAL)
     Route: 048
     Dates: start: 20110101
  5. CONGESCOR [Concomitant]
     Active Substance: BISOPROLOL
  6. DELTACORTENE [Concomitant]
     Active Substance: PREDNISONE
  7. TRIATEC /00885601/ [Concomitant]
     Active Substance: RAMIPRIL

REACTIONS (1)
  - Ileus paralytic [None]

NARRATIVE: CASE EVENT DATE: 20150625
